FAERS Safety Report 5546813-4 (Version None)
Quarter: 2007Q4

REPORT INFORMATION
  Report Type: 
  Country: None (occurrence: None)
  Receive Date: 20071126
  Receipt Date: 20070621
  Transmission Date: 20080405
  Serious: Yes (Other)
  Sender: FDA-Public Use
  Company Number: 2007BH004150

PATIENT
  Age: 84 Year
  Sex: Male
  Weight: 81.2846 kg

DRUGS (1)
  1. DIANEAL [Suspect]
     Indication: RENAL FAILURE CHRONIC
     Dosage: IP
     Route: 033

REACTIONS (4)
  - CHILLS [None]
  - DIARRHOEA [None]
  - PERITONITIS BACTERIAL [None]
  - PYREXIA [None]
